FAERS Safety Report 9137188 (Version 1)
Quarter: 2013Q1

REPORT INFORMATION
  Report Type: Spontaneous
  Country: US (occurrence: US)
  Receive Date: 20130304
  Receipt Date: 20130304
  Transmission Date: 20140127
  Serious: No
  Sender: FDA-Public Use
  Company Number: US-ENDO PHARMACEUTICALS INC.-PRED20110042

PATIENT
  Sex: Male

DRUGS (3)
  1. PREDNISONE [Suspect]
     Indication: JOINT INJURY
     Dosage: UNKNOWN
     Route: 048
  2. PERCOCET [Suspect]
     Indication: JOINT INJURY
     Dosage: UNKNOWN
     Route: 048
  3. BUTRANS [Suspect]
     Indication: PRODUCT USED FOR UNKNOWN INDICATION
     Route: 065

REACTIONS (2)
  - Bone density decreased [Unknown]
  - Feeling abnormal [Unknown]
